FAERS Safety Report 4704458-X (Version None)
Quarter: 2005Q2

REPORT INFORMATION
  Report Type: 
  Country: None (occurrence: None)
  Receive Date: 20050630
  Receipt Date: 20050630
  Transmission Date: 20051028
  Serious: Yes (Death, Life-Threatening, Hospitalization)
  Sender: FDA-Public Use
  Company Number: None

PATIENT
  Sex: Male

DRUGS (2)
  1. LEVETIRACETAM [Suspect]
     Indication: CONVULSION
     Dosage: 250MG BID ORAL
     Route: 048
     Dates: start: 20050324, end: 20050408
  2. CARBAMAZEPINE [Suspect]
     Dosage: 100MG BID ORAL

REACTIONS (4)
  - COMA [None]
  - HYPERTHERMIA [None]
  - PNEUMONIA [None]
  - RESPIRATORY ARREST [None]
